FAERS Safety Report 9788748 (Version 1)
Quarter: 2013Q4

REPORT INFORMATION
  Report Type: Spontaneous
  Country: RU (occurrence: RU)
  Receive Date: 20131230
  Receipt Date: 20131230
  Transmission Date: 20140711
  Serious: Yes (Death)
  Sender: FDA-Public Use
  Company Number: PHHY2013RU151526

PATIENT
  Age: 38 Year
  Sex: Male

DRUGS (1)
  1. GLIVEC [Suspect]
     Route: 048

REACTIONS (4)
  - Leukocytosis [Fatal]
  - Thrombocytopenia [Fatal]
  - Splenomegaly [Fatal]
  - Disease progression [Fatal]
